FAERS Safety Report 6283767-X (Version None)
Quarter: 2009Q3

REPORT INFORMATION
  Report Type: 
  Country: None (occurrence: None)
  Receive Date: 20090724
  Receipt Date: 20090721
  Transmission Date: 20100115
  Serious: Yes (Other)
  Sender: FDA-Public Use
  Company Number: ZM-GILEAD-2009-0022517

PATIENT
  Age: 35 Year
  Sex: Female
  Weight: 70 kg

DRUGS (9)
  1. VIREAD [Suspect]
     Indication: HIV INFECTION
     Route: 048
     Dates: start: 20070129, end: 20090401
  2. EMTRIVA [Suspect]
     Indication: HIV INFECTION
     Route: 048
     Dates: start: 20070129
  3. ZIDOVUDINE [Concomitant]
     Indication: HIV INFECTION
     Route: 048
     Dates: start: 20090402
  4. KALETRA [Concomitant]
     Indication: HIV INFECTION
     Route: 048
     Dates: start: 20070129
  5. BACTRIM [Concomitant]
  6. AMILORIDE/HYDROCHOLOTHIAZIDE [Concomitant]
  7. FERROUS SULFATE TAB [Concomitant]
  8. FOLIC ACID [Concomitant]
  9. MULTI-VITAMIN [Concomitant]

REACTIONS (7)
  - ABORTION SPONTANEOUS COMPLETE [None]
  - ABORTION THREATENED [None]
  - BODY TEMPERATURE DECREASED [None]
  - HAEMOGLOBIN DECREASED [None]
  - MENORRHAGIA [None]
  - METRORRHAGIA [None]
  - PREGNANCY [None]
